FAERS Safety Report 7290937-0 (Version None)
Quarter: 2011Q1

REPORT INFORMATION
  Report Type: 
  Country: None (occurrence: None)
  Receive Date: 20110201
  Receipt Date: 20110127
  Transmission Date: 20110831
  Serious: Yes (Life-Threatening, Hospitalization)
  Sender: FDA-Public Use
  Company Number: 2010SP014655

PATIENT
  Age: 68 Year
  Sex: Female
  Weight: 57 kg

DRUGS (2)
  1. PEGINTERFERON ALFA-2B [Suspect]
     Indication: HEPATITIS C
     Dosage: 0.5 MCG/KG; QW; SC
     Route: 058
     Dates: start: 20090303, end: 20100301
  2. URSO 250 [Concomitant]

REACTIONS (12)
  - DECREASED APPETITE [None]
  - UNEVALUABLE EVENT [None]
  - NO THERAPEUTIC RESPONSE [None]
  - PANCREATIC CARCINOMA METASTATIC [None]
  - METASTASES TO LUNG [None]
  - METASTASES TO RETROPERITONEUM [None]
  - ABDOMINAL ADHESIONS [None]
  - METASTASES TO LYMPH NODES [None]
  - DUODENAL STENOSIS [None]
  - PANCREATITIS [None]
  - ASCITES [None]
  - PLEURAL EFFUSION [None]
